FAERS Safety Report 11137138 (Version 2)
Quarter: 2016Q1

REPORT INFORMATION
  Report Type: Spontaneous
  Country: JP (occurrence: JP)
  Receive Date: 20150526
  Receipt Date: 20160317
  Transmission Date: 20160525
  Serious: Yes (Hospitalization)
  Sender: FDA-Public Use
  Company Number: JP-SA-2015SA068540

PATIENT
  Age: 58 Year
  Sex: Male
  Weight: 73 kg

DRUGS (16)
  1. ELPLAT [Suspect]
     Active Substance: OXALIPLATIN
     Indication: COLON CANCER
     Route: 042
     Dates: start: 20150528, end: 20150528
  2. 5-FU [Suspect]
     Active Substance: FLUOROURACIL
     Indication: COLON CANCER
     Route: 041
     Dates: start: 20150430, end: 20150430
  3. 5-FU [Suspect]
     Active Substance: FLUOROURACIL
     Indication: COLON CANCER
     Route: 041
     Dates: start: 20150514, end: 20150514
  4. MUCOSTA [Concomitant]
     Active Substance: REBAMIPIDE
     Dates: start: 20150515, end: 20150530
  5. CALONAL [Concomitant]
     Active Substance: ACETAMINOPHEN
     Dates: start: 20150527, end: 20150530
  6. 5-FU [Suspect]
     Active Substance: FLUOROURACIL
     Indication: COLON CANCER
     Route: 040
     Dates: start: 20150514, end: 20150514
  7. DECADRON [Concomitant]
     Active Substance: DEXAMETHASONE
     Dates: start: 20150430, end: 20150528
  8. ELPLAT [Suspect]
     Active Substance: OXALIPLATIN
     Indication: COLON CANCER
     Route: 041
     Dates: start: 20150430, end: 20150514
  9. 5-FU [Suspect]
     Active Substance: FLUOROURACIL
     Indication: COLON CANCER
     Route: 041
     Dates: start: 20150528, end: 20150528
  10. CALCIUM LEVOFOLINATE [Suspect]
     Active Substance: LEVOLEUCOVORIN CALCIUM
     Indication: COLON CANCER
     Route: 041
     Dates: start: 20150430, end: 20150528
  11. 5-FU [Suspect]
     Active Substance: FLUOROURACIL
     Indication: COLON CANCER
     Route: 041
     Dates: start: 20150528, end: 20150528
  12. KYTRIL [Concomitant]
     Active Substance: GRANISETRON HYDROCHLORIDE
     Dates: start: 20150430, end: 20150528
  13. RESTAMIN [Concomitant]
     Active Substance: DIPHENHYDRAMINE
     Dates: start: 20150516, end: 20150530
  14. DECADRON [Concomitant]
     Active Substance: DEXAMETHASONE
     Dates: start: 20150515, end: 20150530
  15. GASTER [Concomitant]
     Active Substance: FAMOTIDINE
     Dates: start: 20150527, end: 20150530
  16. 5-FU [Suspect]
     Active Substance: FLUOROURACIL
     Indication: COLON CANCER
     Route: 040
     Dates: start: 20150430, end: 20150430

REACTIONS (4)
  - Haemoglobin decreased [Recovered/Resolved]
  - Loss of consciousness [Recovering/Resolving]
  - Pyrexia [Recovering/Resolving]
  - Nausea [Recovered/Resolved]

NARRATIVE: CASE EVENT DATE: 20150514
